FAERS Safety Report 10358469 (Version 2)
Quarter: 2014Q3

REPORT INFORMATION
  Report Type: Spontaneous
  Country: US (occurrence: US)
  Receive Date: 20140801
  Receipt Date: 20140801
  Transmission Date: 20150326
  Serious: Yes (Hospitalization, Other)
  Sender: FDA-Public Use
  Company Number: US-009507513-2009-193180-NL

PATIENT
  Sex: Female
  Weight: 94.89 kg

DRUGS (5)
  1. NUVARING [Suspect]
     Active Substance: ETHINYL ESTRADIOL\ETONOGESTREL
     Indication: CONTRACEPTION
  2. CYANOCOBALAMIN ZINC TANNATE [Concomitant]
     Dosage: UNK UNK, QD
  3. NUVARING [Suspect]
     Active Substance: ETHINYL ESTRADIOL\ETONOGESTREL
     Indication: MENORRHAGIA
     Dosage: DOSE TEXT: 3 WEEKS IN/ 1 WEEK OUT, CONTINUING: UNK
     Route: 067
     Dates: start: 2006, end: 20090115
  4. NUVARING [Suspect]
     Active Substance: ETHINYL ESTRADIOL\ETONOGESTREL
     Indication: MENSTRUAL CYCLE MANAGEMENT
  5. VITAMINS (UNSPECIFIED) [Concomitant]
     Active Substance: VITAMINS
     Dosage: UNK UNK, QD

REACTIONS (15)
  - Hypertension [Unknown]
  - Mitral valve incompetence [Unknown]
  - Tinea infection [Unknown]
  - Tricuspid valve incompetence [Unknown]
  - Type 2 diabetes mellitus [Not Recovered/Not Resolved]
  - Pulmonary embolism [Recovered/Resolved]
  - Amenorrhoea [Recovered/Resolved]
  - Left ventricular hypertrophy [Unknown]
  - Pain in extremity [Unknown]
  - Osteoarthritis [Unknown]
  - Pulmonary infarction [Unknown]
  - Hepatic steatosis [Unknown]
  - Chest pain [Unknown]
  - Musculoskeletal pain [Unknown]
  - Muscle spasms [Unknown]

NARRATIVE: CASE EVENT DATE: 200703
